FAERS Safety Report 8014153-X (Version None)
Quarter: 2011Q4

REPORT INFORMATION
  Report Type: 
  Country: None (occurrence: None)
  Receive Date: 20111227
  Receipt Date: 20111227
  Transmission Date: 20120403
  Serious: Yes (Hospitalization)
  Sender: FDA-Public Use
  Company Number: None

PATIENT
  Age: 46 Year
  Sex: Male
  Weight: 106.2 kg

DRUGS (4)
  1. IPILIMUMAB [Suspect]
     Indication: METASTATIC MALIGNANT MELANOMA
     Dosage: IPI 330 MG Q 3WKS IV
     Route: 042
     Dates: start: 20111103
  2. IPILIMUMAB [Suspect]
     Indication: METASTATIC MALIGNANT MELANOMA
     Dosage: IPI 330 MG Q 3WKS IV
     Route: 042
     Dates: start: 20111004
  3. IPILIMUMAB [Suspect]
     Indication: METASTATIC MALIGNANT MELANOMA
     Dosage: IPI 330 MG Q 3WKS IV
     Route: 042
     Dates: start: 20111122
  4. VEMURAFENIB [Concomitant]

REACTIONS (11)
  - PYREXIA [None]
  - LICHENOID KERATOSIS [None]
  - CHROMATURIA [None]
  - LIVER DISORDER [None]
  - RASH MACULO-PAPULAR [None]
  - DRUG ERUPTION [None]
  - NEOPLASM PROGRESSION [None]
  - RENAL IMPAIRMENT [None]
  - DIZZINESS [None]
  - BLOOD CREATININE INCREASED [None]
  - MALIGNANT MELANOMA [None]
